FAERS Safety Report 6903641-2 (Version None)
Quarter: 2010Q3

REPORT INFORMATION
  Report Type: 
  Country: None (occurrence: None)
  Receive Date: 20100803
  Receipt Date: 20100714
  Transmission Date: 20110219
  Serious: Yes (Other)
  Sender: FDA-Public Use
  Company Number: US-RANBAXY-2010US-35984

PATIENT

DRUGS (2)
  1. VERAPAMIL [Suspect]
     Indication: ANGINA UNSTABLE
     Dosage: 40 MG, QID
     Route: 065
  2. PINDOLOL [Suspect]
     Indication: HYPERTENSION
     Dosage: 5 MG, BID
     Route: 065

REACTIONS (4)
  - BRADYCARDIA [None]
  - CARDIAC FAILURE [None]
  - DRUG INTERACTION [None]
  - HYPOTENSION [None]
